FAERS Safety Report 4463222-X (Version None)
Quarter: 2004Q3

REPORT INFORMATION
  Report Type: 
  Country: None (occurrence: None)
  Receive Date: 20040930
  Receipt Date: 20040827
  Transmission Date: 20050211
  Serious: Yes (Death)
  Sender: FDA-Public Use
  Company Number: CA-JNJFOC-20040809428

PATIENT
  Sex: Male

DRUGS (8)
  1. DURAGESIC [Suspect]
     Route: 062
  2. DURAGESIC [Suspect]
     Route: 062
  3. SUFENTANIL [Suspect]
     Indication: PAIN
     Route: 042
  4. FENTANYL [Suspect]
     Indication: PAIN
     Dosage: 0.025 MG, HOURLY, AS NECESSARY
     Route: 058
  5. DEXAMETHASONE [Concomitant]
     Route: 049
  6. HYDROCORTISONE SODIUM SUCCINATE [Concomitant]
     Route: 058
  7. ZOPICLONE [Concomitant]
     Indication: SLEEP DISORDER THERAPY
     Route: 049
  8. MIDAZOLAM HCL [Concomitant]
     Dosage: 5 MG/ML; 1 MG EVERY HOUR, SUBCUTANEOUS
     Route: 058

REACTIONS (3)
  - DRUG EFFECT DECREASED [None]
  - PAIN EXACERBATED [None]
  - PHARMACEUTICAL PRODUCT COMPLAINT [None]
